FAERS Safety Report 25621261 (Version 1)
Quarter: 2025Q3

REPORT INFORMATION
  Report Type: Spontaneous
  Country: EU (occurrence: EU)
  Receive Date: 20250730
  Receipt Date: 20250730
  Transmission Date: 20251021
  Serious: Yes (Other)
  Sender: AUROBINDO
  Company Number: EU-AFSSAPS-DJ2025001177

PATIENT
  Age: 89 Year
  Sex: Female
  Weight: 43.6 kg

DRUGS (3)
  1. FUROSEMIDE [Suspect]
     Active Substance: FUROSEMIDE
     Indication: Hyponatraemia
     Dosage: 100 MILLIGRAM, ONCE A DAY
     Route: 048
     Dates: end: 20250510
  2. FUROSEMIDE [Suspect]
     Active Substance: FUROSEMIDE
     Dosage: 200 MILLIGRAM, ONCE A DAY
     Route: 048
     Dates: start: 20250511, end: 20250517
  3. FUROSEMIDE [Suspect]
     Active Substance: FUROSEMIDE
     Dosage: 250 MILLIGRAM, ONCE A DAY
     Route: 048
     Dates: start: 20250518, end: 20250602

REACTIONS (1)
  - Hyponatraemia [Recovered/Resolved]

NARRATIVE: CASE EVENT DATE: 20250516
